FAERS Safety Report 17238609 (Version 5)
Quarter: 2020Q1

REPORT INFORMATION
  Report Type: Spontaneous
  Country: FR (occurrence: FR)
  Receive Date: 20200106
  Receipt Date: 20200312
  Transmission Date: 20200409
  Serious: Yes (Hospitalization)
  Sender: FDA-Public Use
  Company Number: NVSC2019FR085663

PATIENT
  Age: 75 Year
  Sex: Male
  Weight: 92 kg

DRUGS (17)
  1. LAROXYL [Suspect]
     Active Substance: AMITRIPTYLINE HYDROCHLORIDE
     Dosage: 500 MG (CUMULATIVE DOSE)
     Route: 065
  2. NEURONTIN [Concomitant]
     Active Substance: GABAPENTIN
     Indication: NEUROPATHY PERIPHERAL
     Dosage: 1800MG/J PUIS 1400MG/J
     Route: 048
  3. LOVENOX [Suspect]
     Active Substance: ENOXAPARIN SODIUM
     Indication: THROMBOSIS PROPHYLAXIS
  4. PERMIXON [Concomitant]
     Active Substance: HERBALS\SAW PALMETTO
     Indication: PRODUCT USED FOR UNKNOWN INDICATION
     Dosage: 160 MG
     Route: 065
  5. GENTAMICINE [Suspect]
     Active Substance: GENTAMICIN
     Indication: INFECTION
     Dosage: 300 MG, QD
     Route: 042
     Dates: start: 20191008, end: 20191008
  6. LOVENOX [Suspect]
     Active Substance: ENOXAPARIN SODIUM
     Indication: THROMBOSIS PROPHYLAXIS
     Dosage: 4000 IU, QD
     Route: 058
     Dates: start: 20191031, end: 20191109
  7. LAROXYL [Suspect]
     Active Substance: AMITRIPTYLINE HYDROCHLORIDE
     Dosage: 0-0-1
     Route: 048
     Dates: start: 20191102, end: 20191129
  8. SKENAN [Concomitant]
     Active Substance: MORPHINE SULFATE
     Indication: PRODUCT USED FOR UNKNOWN INDICATION
     Dosage: 10 MG
     Route: 065
  9. CUBICIN [Suspect]
     Active Substance: DAPTOMYCIN
     Indication: INFECTION
     Dosage: 1000 MG, QD
     Route: 042
     Dates: start: 20191030, end: 20191118
  10. LAROXYL [Suspect]
     Active Substance: AMITRIPTYLINE HYDROCHLORIDE
     Indication: NEUROPATHY PERIPHERAL
     Dosage: 0-0-1
     Route: 048
     Dates: start: 20191025, end: 20191028
  11. TAZOCILLINE [Suspect]
     Active Substance: PIPERACILLIN SODIUM\TAZOBACTAM SODIUM
     Indication: INFECTION
     Dosage: 1 FLACON 3/JOUR
     Route: 042
     Dates: start: 20191008, end: 20191010
  12. CEFAZOLINE PANPHARMA [Suspect]
     Active Substance: CEFAZOLIN SODIUM
     Indication: INFECTION
     Dosage: 4 G, QD
     Route: 042
     Dates: start: 20191010, end: 20191031
  13. EFFEXOR [Concomitant]
     Active Substance: VENLAFAXINE HYDROCHLORIDE
     Indication: PRODUCT USED FOR UNKNOWN INDICATION
     Dosage: 75 MG
     Route: 065
  14. CUBICIN [Suspect]
     Active Substance: DAPTOMYCIN
     Indication: INJECTION
  15. GENTAMICINE [Suspect]
     Active Substance: GENTAMICIN
     Indication: INJECTION
  16. VANCOMYCIN SANDOZ [Suspect]
     Active Substance: VANCOMYCIN
     Indication: INFECTION
     Dosage: 250 MG, Q24H
     Route: 042
     Dates: start: 20191008, end: 20191010
  17. NEURONTIN [Concomitant]
     Active Substance: GABAPENTIN
     Indication: PRODUCT USED FOR UNKNOWN INDICATION
     Dosage: UNK
     Route: 065

REACTIONS (1)
  - Interstitial lung disease [Recovered/Resolved]

NARRATIVE: CASE EVENT DATE: 20191117
